FAERS Safety Report 16026032 (Version 1)
Quarter: 2019Q1

REPORT INFORMATION
  Report Type: Spontaneous
  Country: FR (occurrence: FR)
  Receive Date: 20190302
  Receipt Date: 20190302
  Transmission Date: 20190418
  Serious: Yes (Death, Life-Threatening, Other)
  Sender: FDA-Public Use
  Company Number: FR-AUROBINDO-AUR-APL-2019-011037

PATIENT

DRUGS (15)
  1. ZOVIRAX [Suspect]
     Active Substance: ACYCLOVIR
     Indication: ANTIVIRAL PROPHYLAXIS
     Dosage: 750 MILLIGRAM, ONCE A DAY (250 MILLIGRAM, TID)
     Route: 042
     Dates: start: 20181201, end: 20181210
  2. ENDOXAN [Suspect]
     Active Substance: CYCLOPHOSPHAMIDE
     Indication: STEM CELL TRANSPLANT
     Dosage: 2400 MILLIGRAM, ONCE A DAY
     Route: 042
     Dates: start: 20181203, end: 20181204
  3. SUPROFEN [Suspect]
     Active Substance: SUPROFEN
     Indication: STOMATITIS
     Dosage: 300 MILLIGRAM, ONCE A DAY (100 MILLIGRAM, TID)
     Route: 042
     Dates: start: 20181204, end: 20181212
  4. SANDIMMUN [Suspect]
     Active Substance: CYCLOSPORINE
     Indication: PROPHYLAXIS AGAINST GRAFT VERSUS HOST DISEASE
  5. AMIKACIN. [Suspect]
     Active Substance: AMIKACIN
     Indication: PSEUDOMONAS INFECTION
     Dosage: 1200 MILLIGRAM, ONCE A DAY
     Route: 042
     Dates: start: 20181206, end: 20181209
  6. CANCIDAS [Suspect]
     Active Substance: CASPOFUNGIN ACETATE
     Indication: ANTIFUNGAL PROPHYLAXIS
     Dosage: 50 MILLIGRAM, ONCE A DAY
     Route: 042
     Dates: start: 20181210, end: 20181213
  7. SANDIMMUN [Suspect]
     Active Substance: CYCLOSPORINE
     Indication: GRAFT VERSUS HOST DISEASE
     Dosage: 150 MILLIGRAM, ONCE A DAY ( CONCENTRATION: 50 MG/ML)
     Route: 042
     Dates: start: 20181205, end: 20181209
  8. LETERMOVIR [Suspect]
     Active Substance: LETERMOVIR
     Indication: ANTIVIRAL PROPHYLAXIS
     Dosage: 240 MILLIGRAM, ONCE A DAY
     Route: 048
     Dates: start: 20181206, end: 20181213
  9. PRIMPERAN [Suspect]
     Active Substance: METOCLOPRAMIDE HYDROCHLORIDE
     Indication: PROPHYLAXIS OF NAUSEA AND VOMITING
     Dosage: 30 MILLIGRAM, ONCE A DAY (CONCENTRATION: 10 MG/2 ML)
     Route: 042
     Dates: start: 20181123, end: 20181212
  10. PIPERACILLIN SODIUM;TAZOBACTAM SODIUM [Suspect]
     Active Substance: PIPERACILLIN SODIUM\TAZOBACTAM SODIUM
     Indication: SEPSIS
     Dosage: 3 DOSAGE FORM, ONCE A DAY (1 DOSAGE FORM, TID )
     Route: 042
     Dates: start: 20181201, end: 20181212
  11. ALPRAZOLAM TABLETS [Suspect]
     Active Substance: ALPRAZOLAM
     Indication: ANXIETY
     Dosage: (1) IN TOTAL, ONCE
     Route: 048
     Dates: start: 20181211, end: 20181211
  12. VFEND [Suspect]
     Active Substance: VORICONAZOLE
     Indication: ANTIFUNGAL PROPHYLAXIS
     Dosage: 500 MILLIGRAM, ONCE A DAY (250 MILLIGRAM, BID)
     Route: 042
     Dates: start: 20181201, end: 20181209
  13. ACUPAN [Suspect]
     Active Substance: NEFOPAM HYDROCHLORIDE
     Indication: STOMATITIS
     Dosage: 80 MILLIGRAM, ONCE A DAY (20 MILLIGRAM, QID)
     Route: 042
     Dates: start: 20181201, end: 20181212
  14. CELLCEPT [Suspect]
     Active Substance: MYCOPHENOLATE MOFETIL\MYCOPHENOLATE MOFETIL HYDROCHLORIDE
     Indication: GRAFT VERSUS HOST DISEASE
     Dosage: 2250 MILLIGRAM, ONCE A DAY (750 MILLIGRAM, TID)
     Route: 048
     Dates: start: 20181205, end: 20181212
  15. PIPERACILLIN SODIUM;TAZOBACTAM SODIUM [Suspect]
     Active Substance: PIPERACILLIN SODIUM\TAZOBACTAM SODIUM
     Indication: FEBRILE NEUTROPENIA
     Dosage: UNK
     Route: 065

REACTIONS (12)
  - Encephalopathy [Fatal]
  - Enterocolitis [Not Recovered/Not Resolved]
  - Cardiac failure [Not Recovered/Not Resolved]
  - Status epilepticus [Unknown]
  - Alanine aminotransferase abnormal [Unknown]
  - Aspartate aminotransferase abnormal [Unknown]
  - Cytokine release syndrome [Fatal]
  - Blood alkaline phosphatase abnormal [Unknown]
  - Acute kidney injury [Not Recovered/Not Resolved]
  - Blood bilirubin abnormal [Unknown]
  - Coma [Fatal]
  - Blood potassium abnormal [Unknown]

NARRATIVE: CASE EVENT DATE: 20181207
